FAERS Safety Report 4304737-4 (Version None)
Quarter: 2004Q1

REPORT INFORMATION
  Report Type: 
  Country: None (occurrence: None)
  Receive Date: 20040225
  Receipt Date: 20040225
  Transmission Date: 20041129
  Serious: Yes (Hospitalization)
  Sender: FDA-Public Use
  Company Number: None

PATIENT
  Sex: Male
  Weight: 59 kg

DRUGS (4)
  1. IRESSA [Suspect]
     Indication: OESOPHAGEAL CARCINOMA
     Dosage: 250 MG QD PO
     Route: 048
     Dates: start: 20040126
  2. CISPLATIN [Suspect]
     Indication: OESOPHAGEAL CARCINOMA
     Dosage: 34 MG QD IV
     Route: 042
     Dates: start: 20040126, end: 20040130
  3. FLUOROURACIL [Suspect]
     Indication: OESOPHAGEAL CARCINOMA
     Dosage: 1680 MG QD IV
     Route: 042
     Dates: start: 20040126, end: 20040130
  4. ULTRCAL [Suspect]
     Indication: OESOPHAGEAL CARCINOMA
     Dosage: 80 MLS QHR QHR TF
     Dates: start: 20041210

REACTIONS (4)
  - DEHYDRATION [None]
  - PNEUMONIA [None]
  - PRODUCTIVE COUGH [None]
  - PYREXIA [None]
